FAERS Safety Report 4353995-9 (Version None)
Quarter: 2004Q2

REPORT INFORMATION
  Report Type: 
  Country: None (occurrence: None)
  Receive Date: 20040506
  Receipt Date: 20040322
  Transmission Date: 20050107
  Serious: Yes (Life-Threatening, Disabling)
  Sender: FDA-Public Use
  Company Number: US-GLAXOSMITHKLINE-A0503851A

PATIENT
  Age: 82 Year
  Sex: Male

DRUGS (3)
  1. AVANDAMET [Suspect]
     Route: 048
     Dates: start: 20040128
  2. ATACAND [Concomitant]
  3. ZESTRIL [Concomitant]

REACTIONS (4)
  - ASTHENIA [None]
  - DIZZINESS [None]
  - HYPERHIDROSIS [None]
  - HYPOGLYCAEMIA [None]
